FAERS Safety Report 6956616-1 (Version None)
Quarter: 2010Q3

REPORT INFORMATION
  Report Type: 
  Country: None (occurrence: None)
  Receive Date: 20100830
  Receipt Date: 20100818
  Transmission Date: 20110219
  Serious: Yes (Other)
  Sender: FDA-Public Use
  Company Number: JP-PFIZER INC-2010108260

PATIENT
  Age: 61 Year
  Sex: Female

DRUGS (2)
  1. CAMPTOSAR [Suspect]
     Indication: SMALL CELL CARCINOMA
     Dosage: UNK
     Route: 041
  2. CARBOPLATIN [Concomitant]
     Indication: SMALL CELL CARCINOMA
     Dosage: UNK
     Route: 041

REACTIONS (1)
  - PNEUMATOSIS INTESTINALIS [None]
